FAERS Safety Report 7087294-1 (Version None)
Quarter: 2010Q4

REPORT INFORMATION
  Report Type: 
  Country: None (occurrence: None)
  Receive Date: 20101107
  Receipt Date: 20100929
  Transmission Date: 20110411
  Serious: Yes (Other)
  Sender: FDA-Public Use
  Company Number: PHHY2010DE65548

PATIENT
  Age: 80 Year
  Sex: Female

DRUGS (3)
  1. SANDOSTATIN [Suspect]
     Indication: CARCINOID SYNDROME
     Dosage: 100 UG, TID
  2. SANDOSTATIN [Suspect]
     Dosage: 200 UG, TID
  3. SANDOSTATIN LAR [Suspect]
     Dosage: 30 MG
     Route: 030
     Dates: start: 20100818

REACTIONS (7)
  - BLOOD POTASSIUM DECREASED [None]
  - CARDIOVASCULAR DISORDER [None]
  - DIARRHOEA [None]
  - DRUG INEFFECTIVE [None]
  - FLATULENCE [None]
  - INJECTION SITE HAEMORRHAGE [None]
  - MALIGNANT NEOPLASM PROGRESSION [None]
